FAERS Safety Report 6036129-4 (Version None)
Quarter: 2009Q1

REPORT INFORMATION
  Report Type: 
  Country: None (occurrence: None)
  Receive Date: 20090113
  Receipt Date: 20090105
  Transmission Date: 20090719
  Serious: Yes (Other)
  Sender: FDA-Public Use
  Company Number: JP-PFIZER INC-2009152358

PATIENT

DRUGS (3)
  1. CORTRIL [Suspect]
     Dosage: 15 MG, 2X/DAY
     Route: 048
  2. PREDNISOLONE AND PREDNISOLONE STEAGLATE [Suspect]
  3. FUNGIZONE [Concomitant]
     Route: 048

REACTIONS (2)
  - OESOPHAGEAL CANDIDIASIS [None]
  - ORAL CANDIDIASIS [None]
